FAERS Safety Report 19719870 (Version 1)
Quarter: 2021Q3

REPORT INFORMATION
  Report Type: Spontaneous
  Country: JP (occurrence: JP)
  Receive Date: 20210819
  Receipt Date: 20210819
  Transmission Date: 20211014
  Serious: Yes (Other)
  Sender: FDA-Public Use
  Company Number: JP-TEVA-2021-JP-1942051

PATIENT
  Age: 10 Year
  Sex: Male

DRUGS (4)
  1. METHYLPREDNISOLONE SODIUM SUCCINATE. [Suspect]
     Active Substance: METHYLPREDNISOLONE SODIUM SUCCINATE
     Indication: ARTHRITIS
     Route: 042
  2. OLOPATADINE. [Concomitant]
     Active Substance: OLOPATADINE
     Indication: ANAPHYLACTIC REACTION
     Route: 065
  3. PREDNISOLONE. [Suspect]
     Active Substance: PREDNISOLONE
     Indication: ARTHRITIS
     Dosage: 2 MG/KG DAILY;
     Route: 048
  4. CEFTRIAXONE. [Concomitant]
     Active Substance: CEFTRIAXONE
     Indication: BACTERIAL MYOSITIS
     Route: 065

REACTIONS (2)
  - False negative investigation result [Unknown]
  - Anaphylactic reaction [Recovered/Resolved]
